FAERS Safety Report 24931763 (Version 1)
Quarter: 2025Q1

REPORT INFORMATION
  Report Type: Report from Study
  Country: US (occurrence: US)
  Receive Date: 20250205
  Receipt Date: 20250205
  Transmission Date: 20250409
  Serious: No
  Sender: EXELIXIS
  Company Number: US-EXELIXIS-CABO-24078557

PATIENT
  Sex: Female

DRUGS (1)
  1. CABOMETYX [Suspect]
     Active Substance: CABOZANTINIB S-MALATE
     Indication: Neurofibromatosis
     Dosage: 60 MG, QD
     Route: 048
     Dates: start: 202308

REACTIONS (2)
  - Hair colour changes [Unknown]
  - Off label use [Unknown]
